FAERS Safety Report 5533698-5 (Version None)
Quarter: 2007Q4

REPORT INFORMATION
  Report Type: 
  Country: None (occurrence: None)
  Receive Date: 20071129
  Receipt Date: 20071115
  Transmission Date: 20080405
  Serious: Yes (Other)
  Sender: FDA-Public Use
  Company Number: 164196ISR

PATIENT
  Age: 43 Year
  Sex: Male

DRUGS (2)
  1. IBUPROFEN [Suspect]
     Dosage: 18 TABLETS
     Dates: start: 20071029
  2. ATAZANAVIR SULFATE [Suspect]
     Dosage: 60 TABLETS
     Dates: start: 20071029

REACTIONS (5)
  - INTENTIONAL OVERDOSE [None]
  - LIVER FUNCTION TEST ABNORMAL [None]
  - PYREXIA [None]
  - SOMNOLENCE [None]
  - SUICIDE ATTEMPT [None]
